FAERS Safety Report 5821693-8 (Version None)
Quarter: 2008Q3

REPORT INFORMATION
  Report Type: 
  Country: None (occurrence: None)
  Receive Date: 20080724
  Receipt Date: 20080718
  Transmission Date: 20090109
  Serious: Yes (Hospitalization)
  Sender: FDA-Public Use
  Company Number: DE-WYE-G01801208

PATIENT
  Sex: Male
  Weight: 85 kg

DRUGS (4)
  1. TORISEL [Suspect]
     Indication: METASTATIC RENAL CELL CARCINOMA
     Dosage: 25 MG PER WEEK
     Route: 042
     Dates: start: 20080313, end: 20080320
  2. SPALT MOBIL [Concomitant]
     Dosage: 1200 MG PER DAY
     Route: 048
     Dates: start: 20080225
  3. ENOXAPARIN SODIUM [Concomitant]
     Dosage: 0.4 ML WITH 40 MG, FREQUENCY UNKNOWN
     Dates: start: 20080220, end: 20080501
  4. ZOLEDRONIC ACID [Concomitant]
     Indication: METASTASES TO BONE
     Dosage: 4 MG EVERY 4 WEEKS
     Route: 042
     Dates: start: 20080327

REACTIONS (4)
  - C-REACTIVE PROTEIN INCREASED [None]
  - DYSPNOEA [None]
  - LUNG INFILTRATION [None]
  - PNEUMONIA [None]
